FAERS Safety Report 8431225-6 (Version None)
Quarter: 2012Q2

REPORT INFORMATION
  Report Type: 
  Country: None (occurrence: None)
  Receive Date: 20120613
  Receipt Date: 20120608
  Transmission Date: 20120825
  Serious: Yes (Disabling)
  Sender: FDA-Public Use
  Company Number: GB-AMGEN-GBRSP2012035913

PATIENT
  Age: 82 Year
  Sex: Female
  Weight: 85 kg

DRUGS (14)
  1. CODEINE SULFATE [Concomitant]
  2. LANSOPRAZOLE [Concomitant]
  3. LATANOPROST [Concomitant]
  4. LERCANIDIPINE [Concomitant]
  5. LISINOPRIL [Concomitant]
  6. CALCEOS [Concomitant]
  7. MIRTAZAPINE [Concomitant]
  8. PROLIA [Suspect]
     Indication: OSTEOPOROSIS
     Dosage: 60 MG, UNK
     Route: 058
     Dates: start: 20120419
  9. BRICANYL [Concomitant]
  10. INFUMORPH [Concomitant]
  11. SYMBICORT [Concomitant]
  12. ZOLPIDEM [Concomitant]
  13. BUMETANIDE [Concomitant]
  14. PROCHLORPERAZINE [Concomitant]

REACTIONS (1)
  - DYSPEPSIA [None]
